FAERS Safety Report 6115153-7 (Version None)
Quarter: 2009Q1

REPORT INFORMATION
  Report Type: 
  Country: None (occurrence: None)
  Receive Date: 20090313
  Receipt Date: 20090311
  Transmission Date: 20090719
  Serious: Yes (Death, Hospitalization)
  Sender: FDA-Public Use
  Company Number: 1999COU1193

PATIENT
  Age: 64 Year
  Sex: Female

DRUGS (14)
  1. COUMADIN [Interacting]
     Indication: VENOUS THROMBOSIS
     Dosage: UNK-3 MG DLY
     Route: 048
     Dates: end: 19991001
  2. TAXOL [Interacting]
     Indication: BREAST CANCER METASTATIC
     Dosage: 150 MG AES#DOSE_FREQUENCY: DLY
     Route: 042
     Dates: start: 19990921, end: 19990921
  3. HERCEPTIN [Suspect]
     Indication: BREAST CANCER METASTATIC
     Dosage: 315 MG AES#DOSE_FREQUENCY: DLY
     Route: 042
     Dates: start: 19990921, end: 19991001
  4. OXYCODONE HCL [Concomitant]
     Dosage: 1 DOSAGE FORM=5-10 MG Q4HR
     Route: 048
  5. OXYCONTIN [Concomitant]
     Dosage: 80 MG AES#DOSE_FREQUENCY: BID
     Route: 048
  6. SEREVENT [Concomitant]
     Dosage: 2 PUFF AES#DOSE_FREQUENCY: QID
     Route: 048
  7. AZMACORT [Concomitant]
     Dosage: 2 PUFF AES#DOSE_FREQUENCY: QID
     Route: 048
  8. ZANTAC [Concomitant]
     Dosage: 300 MG AES#DOSE_FREQUENCY: QHS
     Route: 048
  9. SYNTHROID [Concomitant]
     Dosage: 0.175 MG AES#DOSE_FREQUENCY: QD
     Route: 048
  10. REGLAN [Concomitant]
     Dosage: 5 MG AES#DOSE_FREQUENCY: TID
     Route: 048
  11. SENOKOT [Concomitant]
     Dosage: AES#DOSE_FREQUENCY: PRN
     Route: 048
  12. ADRIAMYCIN PFS [Concomitant]
     Dates: start: 19990501, end: 19990701
  13. VELBAN [Concomitant]
     Dates: start: 19990701
  14. THIOTEPA [Concomitant]
     Dates: start: 19990701

REACTIONS (12)
  - ABDOMINAL DISCOMFORT [None]
  - ACTIVATED PARTIAL THROMBOPLASTIN TIME PROLONGED [None]
  - ASTHENIA [None]
  - BREAST CANCER METASTATIC [None]
  - DRUG INTERACTION [None]
  - DYSPNOEA [None]
  - ECCHYMOSIS [None]
  - GASTROINTESTINAL HAEMORRHAGE [None]
  - HAEMORRHAGE [None]
  - LETHARGY [None]
  - MENTAL IMPAIRMENT [None]
  - PROTHROMBIN TIME PROLONGED [None]
